FAERS Safety Report 18355714 (Version 2)
Quarter: 2020Q4

REPORT INFORMATION
  Report Type: Spontaneous
  Country: ES (occurrence: ES)
  Receive Date: 20201007
  Receipt Date: 20201021
  Transmission Date: 20210114
  Serious: Yes (Hospitalization, Other)
  Sender: FDA-Public Use
  Company Number: ES-LUPIN PHARMACEUTICALS INC.-2020-06905

PATIENT
  Age: 70 Year
  Sex: Male

DRUGS (2)
  1. METRONIDAZOLE. [Suspect]
     Active Substance: METRONIDAZOLE
     Indication: OSTEOMYELITIS
     Dosage: UNK
     Route: 065
     Dates: start: 2020, end: 2020
  2. CIPROFLOXACIN. [Concomitant]
     Active Substance: CIPROFLOXACIN
     Indication: OSTEOMYELITIS
     Dosage: UNK
     Route: 065
     Dates: start: 2020

REACTIONS (6)
  - Nervous system disorder [Recovering/Resolving]
  - Dysmetria [Recovering/Resolving]
  - Disorientation [Recovering/Resolving]
  - Balance disorder [Recovered/Resolved]
  - Dysarthria [Recovering/Resolving]
  - Mucosal dryness [Recovering/Resolving]

NARRATIVE: CASE EVENT DATE: 2020
